FAERS Safety Report 7314787-1 (Version None)
Quarter: 2011Q1

REPORT INFORMATION
  Report Type: 
  Country: None (occurrence: None)
  Receive Date: 20110225
  Receipt Date: 20110114
  Transmission Date: 20110831
  Serious: No
  Sender: FDA-Public Use
  Company Number: US-MYLANLABS-2010S1022563

PATIENT
  Age: 15 Year
  Sex: Male

DRUGS (2)
  1. AMNESTEEM [Suspect]
     Route: 048
     Dates: start: 20101021, end: 20101122
  2. SEPTRA DS [Concomitant]

REACTIONS (3)
  - DRY SKIN [None]
  - MUSCULOSKELETAL DISCOMFORT [None]
  - HYPOTENSION [None]
